FAERS Safety Report 23245287 (Version 1)
Quarter: 2023Q4

REPORT INFORMATION
  Report Type: Other
  Country: JP (occurrence: JP)
  Receive Date: 20231130
  Receipt Date: 20231130
  Transmission Date: 20240110
  Serious: Yes (Other)
  Sender: FDA-Public Use
  Company Number: JP-CHUGAI-2023041856AA

PATIENT
  Age: 70 Year
  Sex: Male

DRUGS (3)
  1. AVASTIN [Suspect]
     Active Substance: BEVACIZUMAB
     Indication: Lung neoplasm malignant
     Dosage: UNK
     Route: 065
  2. CARBOPLATIN [Concomitant]
     Active Substance: CARBOPLATIN
     Indication: Lung neoplasm malignant
     Dosage: UNK
  3. PEMETREXED [Concomitant]
     Active Substance: PEMETREXED
     Indication: Lung neoplasm malignant
     Dosage: UNK
     Route: 065

REACTIONS (1)
  - Diffuse large B-cell lymphoma [Unknown]
